FAERS Safety Report 17758450 (Version 1)
Quarter: 2020Q2

REPORT INFORMATION
  Report Type: Spontaneous
  Country: DE (occurrence: DE)
  Receive Date: 20200507
  Receipt Date: 20200507
  Transmission Date: 20200714
  Serious: Yes (Other)
  Sender: FDA-Public Use
  Company Number: NVSC2020DE121100

PATIENT
  Age: 80 Year
  Sex: Male
  Weight: 105 kg

DRUGS (2)
  1. CLINDAMYCIN - 1 A PHARMA 600 MG FILMTABLETTEN [Suspect]
     Active Substance: CLINDAMYCIN
     Indication: DIABETIC FOOT
     Dosage: 600 MG, TID
     Route: 048
     Dates: start: 20200108
  2. CLINDAMYCIN - 1 A PHARMA 600 MG FILMTABLETTEN [Suspect]
     Active Substance: CLINDAMYCIN
     Indication: OSTEOMYELITIS
     Dosage: 600 MG, TID
     Route: 048
     Dates: start: 20200115

REACTIONS (1)
  - Hepatitis [Recovered/Resolved]

NARRATIVE: CASE EVENT DATE: 20200111
